FAERS Safety Report 8366795-X (Version None)
Quarter: 2012Q2

REPORT INFORMATION
  Report Type: 
  Country: None (occurrence: None)
  Receive Date: 20120517
  Receipt Date: 20120511
  Transmission Date: 20120825
  Serious: Yes (Hospitalization)
  Sender: FDA-Public Use
  Company Number: ES-ROCHE-1051339

PATIENT
  Sex: Female
  Weight: 56 kg

DRUGS (12)
  1. ACTEMRA [Suspect]
     Dosage: STARTING DOSE: 8 MG/KG
     Route: 042
     Dates: start: 20110728
  2. HYDROXYCHLOROQUINE SULFATE [Concomitant]
     Indication: RHEUMATOID ARTHRITIS
     Route: 048
     Dates: start: 20041108
  3. ENALAPRIL MALEATE [Concomitant]
     Indication: HYPERTENSION
     Route: 048
  4. METHYLPREDNISOLONE [Concomitant]
     Route: 048
  5. ARAVA [Suspect]
     Indication: RHEUMATOID ARTHRITIS
     Route: 048
     Dates: start: 20061110
  6. ISONIAZID [Concomitant]
     Indication: TUBERCULOSIS
     Route: 048
  7. ACTEMRA [Suspect]
     Dosage: STARTING DOSE: 8 MG/KG
     Route: 042
     Dates: start: 20110824
  8. ACTEMRA [Suspect]
     Dates: end: 20111026
  9. OMEPRAZOLE [Concomitant]
     Indication: PROPHYLAXIS AGAINST GASTROINTESTINAL ULCER
     Route: 048
  10. HYDROXYCHLOROQUINE SULFATE [Concomitant]
     Route: 048
  11. ACTEMRA [Suspect]
     Indication: RHEUMATOID ARTHRITIS
     Dosage: STARTING DOSE: 8 MG/KG
     Route: 042
     Dates: start: 20110531
  12. ACTEMRA [Suspect]
     Dosage: STARTING DOSE: 8 MG/KG
     Route: 042
     Dates: start: 20110926

REACTIONS (2)
  - HERPES ZOSTER [None]
  - PANCYTOPENIA [None]
